FAERS Safety Report 10516112 (Version 1)
Quarter: 2014Q4

REPORT INFORMATION
  Report Type: Spontaneous
  Country: GR (occurrence: None)
  Receive Date: 20141009
  Receipt Date: 20141009
  Transmission Date: 20150528
  Serious: Yes (Death, Hospitalization)
  Sender: FDA-Public Use
  Company Number: COR_00096_2014

PATIENT
  Age: 65 Year
  Sex: Female

DRUGS (1)
  1. CARBOPLATIN. [Suspect]
     Active Substance: CARBOPLATIN
     Indication: OVARIAN CANCER

REACTIONS (6)
  - Hypersensitivity [None]
  - Respiratory failure [None]
  - Sepsis [None]
  - Acute respiratory distress syndrome [None]
  - Pneumonia [None]
  - Confusional state [None]
